FAERS Safety Report 19441958 (Version 2)
Quarter: 2021Q3

REPORT INFORMATION
  Report Type: Report from Study
  Country: None (occurrence: US)
  Receive Date: 20210621
  Receipt Date: 20210706
  Transmission Date: 20211014
  Serious: Yes (Other)
  Sender: FDA-Public Use
  Company Number: US-ABBVIE-21K-163-3953324-00

PATIENT
  Age: 60 Year
  Sex: Female
  Weight: 90.8 kg

DRUGS (2)
  1. HUMIRA [Suspect]
     Active Substance: ADALIMUMAB
     Route: 058
     Dates: start: 2021
  2. HUMIRA [Suspect]
     Active Substance: ADALIMUMAB
     Indication: RHEUMATOID ARTHRITIS
     Route: 058
     Dates: start: 20200604, end: 20210527

REACTIONS (5)
  - Neoplasm malignant [Recovered/Resolved]
  - Shoulder arthroplasty [Unknown]
  - Joint swelling [Unknown]
  - Joint stiffness [Unknown]
  - Pain [Unknown]

NARRATIVE: CASE EVENT DATE: 202010
